FAERS Safety Report 6794035-1 (Version None)
Quarter: 2010Q2

REPORT INFORMATION
  Report Type: 
  Country: None (occurrence: None)
  Receive Date: 20100624
  Receipt Date: 20070315
  Transmission Date: 20101027
  Serious: No
  Sender: FDA-Public Use
  Company Number: US-PFIZER INC-ENC200700039

PATIENT
  Sex: Male
  Weight: 75.74 kg

DRUGS (18)
  1. ARGATROBAN [Suspect]
     Indication: HEPARIN-INDUCED THROMBOCYTOPENIA
     Dosage: 2 MG/KG/MIN
     Route: 042
     Dates: start: 20070314, end: 20070314
  2. ARGATROBAN [Suspect]
     Dosage: 1 MCG/KG/MIN,FREQUENCY:  UNK
     Dates: start: 20070314, end: 20070315
  3. ARGATROBAN [Suspect]
     Dosage: 1.5 MCG/KG/MIN
     Route: 042
     Dates: start: 20070315, end: 20070315
  4. ARGATROBAN [Suspect]
     Dosage: 2 MCG/KG/MIN
     Route: 042
     Dates: start: 20070315, end: 20070315
  5. ARGATROBAN [Suspect]
     Dosage: 1.5 MCG/KG/MIN
     Route: 042
     Dates: start: 20070315, end: 20070316
  6. ARGATROBAN [Suspect]
     Dosage: 1.5 MCG/KG/MIN
     Route: 042
     Dates: start: 20070316, end: 20070316
  7. ARGATROBAN [Suspect]
     Dosage: 1.5 MCG/KG/MIN
     Route: 042
     Dates: start: 20070316, end: 20070316
  8. ARGATROBAN [Suspect]
     Dosage: 1.3 MCG/KG/MIN
     Route: 042
     Dates: start: 20070316, end: 20070317
  9. BISACODYL [Concomitant]
  10. CEFTRIAXONE [Concomitant]
  11. TYLENOL W/ CODEINE NO. 3 [Concomitant]
  12. DOCUSATE SODIUM [Concomitant]
  13. LANSOPRAZOLE [Concomitant]
  14. GLUCOSE, SODIUM CHLORIDE [Concomitant]
  15. FERROUS FUMARATE [Concomitant]
  16. GENTAMICIN SULFATE [Concomitant]
  17. IBUPROFEN [Concomitant]
  18. INSULIN [Concomitant]
     Dosage: 70/30

REACTIONS (1)
  - ACTIVATED PARTIAL THROMBOPLASTIN TIME PROLONGED [None]
